FAERS Safety Report 6609059-4 (Version None)
Quarter: 2010Q1

REPORT INFORMATION
  Report Type: 
  Country: None (occurrence: None)
  Receive Date: 20100224
  Receipt Date: 20100224
  Transmission Date: 20100710
  Serious: Yes (Other)
  Sender: FDA-Public Use
  Company Number: None

PATIENT
  Age: 38 Year
  Sex: Female
  Weight: 54.4316 kg

DRUGS (1)
  1. LEXAPRO [Suspect]
     Dosage: 10 MG DAILY PO
     Route: 048
     Dates: start: 20090602, end: 20100131

REACTIONS (2)
  - PRODUCT CONTAMINATION [None]
  - RASH [None]
